FAERS Safety Report 8691258 (Version 2)
Quarter: 2012Q4

REPORT INFORMATION
  Report Type: 
  Country: BR (occurrence: BR)
  Receive Date: 20120730
  Receipt Date: 20120830
  Transmission Date: 20130627
  Serious: Yes (Other)
  Sender: FDA-Public Use
  Company Number: PHHY2012BR064829

PATIENT
  Sex: Female

DRUGS (11)
  1. DIOVAN HCT [Suspect]
     Dosage: 1 DF per day
     Route: 048
     Dates: start: 20111103
  2. SELOZOK [Concomitant]
     Dosage: 1DF(metoprolol succinate100mg)
     Route: 048
     Dates: start: 20111103
  3. ZANIDIP [Concomitant]
     Dosage: 1 DF, QD (in the morning)
     Route: 048
     Dates: start: 20111103
  4. MONOCORDIL [Concomitant]
     Dosage: 1 DF (in morning and night, BID
     Route: 048
     Dates: start: 20111103
  5. ATENSINA [Concomitant]
     Dosage: 1 DF, every 12 hours
     Route: 048
     Dates: start: 20111103
  6. ROSUVASTATIN [Concomitant]
  7. AAS [Concomitant]
     Dosage: 1 DF daily
     Dates: start: 20111103
  8. CRESTOR [Concomitant]
     Dosage: 1 DF, at dinner
     Route: 048
     Dates: start: 20111103
  9. RIVOTRIL [Concomitant]
     Indication: SLEEP DISORDER
     Dosage: 10 DF, UNK
  10. EXODUS [Concomitant]
     Indication: DEPRESSION
     Dosage: 1 DF, a day
  11. INSULIN INJECTION [Concomitant]
     Indication: DIABETES MELLITUS
     Dosage: 1 DF, QD

REACTIONS (5)
  - Arterial disorder [Unknown]
  - Gait disturbance [Not Recovered/Not Resolved]
  - Influenza [Not Recovered/Not Resolved]
  - Fatigue [Not Recovered/Not Resolved]
  - Dyspnoea [Not Recovered/Not Resolved]
